FAERS Safety Report 4346013-X (Version None)
Quarter: 2004Q2

REPORT INFORMATION
  Report Type: 
  Country: None (occurrence: None)
  Receive Date: 20040423
  Receipt Date: 20040423
  Transmission Date: 20050107
  Serious: Yes (Death)
  Sender: FDA-Public Use
  Company Number: None

PATIENT
  Age: 34 Month
  Sex: Female

DRUGS (1)
  1. TPN [Suspect]

REACTIONS (4)
  - BLOOD POTASSIUM INCREASED [None]
  - COMA [None]
  - ELECTROLYTE IMBALANCE [None]
  - PHARMACEUTICAL PRODUCT COMPLAINT [None]
